FAERS Safety Report 8521981-0 (Version None)
Quarter: 2012Q3

REPORT INFORMATION
  Report Type: 
  Country: None (occurrence: None)
  Receive Date: 20120719
  Receipt Date: 20070615
  Transmission Date: 20120928
  Serious: Yes (Other)
  Sender: FDA-Public Use
  Company Number: CO-PFIZER INC-2012170775

PATIENT
  Age: 69 Year
  Sex: Male

DRUGS (4)
  1. QUINAPRIL AND HYDROCHLOROTHIAZIDE [Suspect]
     Indication: HYPERTENSION
     Dosage: 32.5 MG, 1X/DAY
  2. METOPROLOL [Concomitant]
     Dosage: 50 MG, 2X/DAY
  3. LIPITOR [Suspect]
     Indication: DYSLIPIDAEMIA
     Dosage: 10 MG, 1X/DAY
  4. ACETYLSALICYLIC ACID [Concomitant]
     Dosage: 100 MG, 1X/DAY

REACTIONS (3)
  - CHEST PAIN [None]
  - ACUTE MYOCARDIAL INFARCTION [None]
  - DYSPNOEA [None]
